FAERS Safety Report 12349271 (Version 2)
Quarter: 2016Q2

REPORT INFORMATION
  Report Type: Report from Study
  Country: US (occurrence: US)
  Receive Date: 20160509
  Receipt Date: 20160609
  Transmission Date: 20160815
  Serious: No
  Sender: FDA-Public Use
  Company Number: GXBR2016US001708

PATIENT
  Age: 56 Year
  Sex: Male

DRUGS (4)
  1. LEVOXYL [Concomitant]
     Active Substance: LEVOTHYROXINE SODIUM
     Dosage: 88 UG, QD
  2. OMNITROPE [Suspect]
     Active Substance: SOMATROPIN
     Indication: GROWTH HORMONE DEFICIENCY
     Dosage: 0.2 MG, QD
     Route: 065
     Dates: start: 20160421
  3. NASONEX [Concomitant]
     Active Substance: MOMETASONE FUROATE
     Indication: SEASONAL ALLERGY
     Dosage: 50 UG,2 SPARYS, QD
     Route: 045
  4. QVAR [Concomitant]
     Active Substance: BECLOMETHASONE DIPROPIONATE
     Indication: ASTHMA
     Dosage: 80 UG, 2 PUFFS, BID
     Route: 055

REACTIONS (8)
  - Fatigue [Not Recovered/Not Resolved]
  - Energy increased [Unknown]
  - Urinary tract infection [Unknown]
  - Blood urine present [Unknown]
  - Arthralgia [Unknown]
  - Feeling abnormal [Recovering/Resolving]
  - Insomnia [Recovered/Resolved]
  - Seasonal allergy [Unknown]

NARRATIVE: CASE EVENT DATE: 20160425
